FAERS Safety Report 19124120 (Version 2)
Quarter: 2021Q3

REPORT INFORMATION
  Report Type: Spontaneous
  Country: US (occurrence: US)
  Receive Date: 20210413
  Receipt Date: 20210713
  Transmission Date: 20211014
  Serious: No
  Sender: FDA-Public Use
  Company Number: US-BRISTOL-MYERS SQUIBB COMPANY-BMS-2021-033731

PATIENT
  Age: 82 Year
  Sex: Female

DRUGS (1)
  1. ORENCIA [Suspect]
     Active Substance: ABATACEPT
     Indication: RHEUMATOID ARTHRITIS
     Dosage: 500 MG, AT WEEK 0, WEEK 2, AND WEEK 4, THEN EVERY 4 WEEKS
     Route: 042
     Dates: start: 20210127

REACTIONS (2)
  - Rash [Unknown]
  - Contusion [Unknown]
